FAERS Safety Report 7369924-X (Version None)
Quarter: 2011Q1

REPORT INFORMATION
  Report Type: 
  Country: None (occurrence: None)
  Receive Date: 20110323
  Receipt Date: 20110322
  Transmission Date: 20110831
  Serious: Yes (Hospitalization)
  Sender: FDA-Public Use
  Company Number: JP-PFIZER INC-2011032755

PATIENT
  Age: 93 Year
  Sex: Female

DRUGS (6)
  1. RISEDRONATE SODIUM HYDRATE [Concomitant]
  2. PREDONINE [Concomitant]
  3. LYRICA [Suspect]
     Indication: INTERCOSTAL NEURALGIA
     Dosage: 150 MG, DAILY
     Route: 048
     Dates: start: 20110202
  4. RHEUMATREX [Concomitant]
  5. ASPARA [Concomitant]
  6. GLAKAY [Concomitant]

REACTIONS (3)
  - LOSS OF CONSCIOUSNESS [None]
  - BLOOD CREATINE PHOSPHOKINASE INCREASED [None]
  - FALL [None]
